FAERS Safety Report 5634794-4 (Version None)
Quarter: 2008Q1

REPORT INFORMATION
  Report Type: 
  Country: None (occurrence: None)
  Receive Date: 20080222
  Receipt Date: 20070410
  Transmission Date: 20080703
  Serious: Yes (Hospitalization)
  Sender: FDA-Public Use
  Company Number: US-ASTRAZENECA-2007UW02058

PATIENT
  Age: 546 Month
  Sex: Male
  Weight: 102.3 kg

DRUGS (6)
  1. SEROQUEL [Suspect]
     Indication: DEPRESSION
     Route: 048
     Dates: start: 20001101, end: 20060201
  2. SEROQUEL [Suspect]
     Indication: BIPOLAR DISORDER
     Route: 048
     Dates: start: 20001101, end: 20060201
  3. DEPAKOTE [Concomitant]
  4. ABILIFY [Concomitant]
     Dates: start: 20050101, end: 20060101
  5. HALDOL [Concomitant]
     Dates: start: 20060101
  6. RISPERDAL [Concomitant]
     Dates: start: 19990101, end: 20020101

REACTIONS (11)
  - ALCOHOL ABUSE [None]
  - ASTHMA [None]
  - COUGH [None]
  - EYE PRURITUS [None]
  - GASTROOESOPHAGEAL REFLUX DISEASE [None]
  - MAJOR DEPRESSION [None]
  - OVERDOSE [None]
  - PAIN [None]
  - STOMACH DISCOMFORT [None]
  - TYPE 2 DIABETES MELLITUS [None]
  - VERTIGO [None]
